FAERS Safety Report 17077195 (Version 6)
Quarter: 2021Q1

REPORT INFORMATION
  Report Type: Spontaneous
  Country: JP (occurrence: JP)
  Receive Date: 20191126
  Receipt Date: 20210212
  Transmission Date: 20210419
  Serious: Yes (Hospitalization, Other)
  Sender: FDA-Public Use
  Company Number: JP-GLAXOSMITHKLINE-JP2019JPN211150

PATIENT
  Age: 8 Year
  Sex: Male
  Weight: 24.7 kg

DRUGS (4)
  1. SERETIDE [Suspect]
     Active Substance: FLUTICASONE PROPIONATE\SALMETEROL XINAFOATE
     Indication: ASTHMA
     Dosage: UNK, BID, 1 INHALATION PER DOSE
     Route: 055
     Dates: start: 20191118
  2. CARBOCISTEINE [Concomitant]
     Active Substance: CARBOCYSTEINE
     Indication: ASTHMA
     Dosage: UNK
  3. TIPEPIDINE HIBENZATE [Concomitant]
     Active Substance: TIPEPIDINE HIBENZATE
     Indication: ASTHMA
     Dosage: UNK
  4. SERETIDE [Suspect]
     Active Substance: FLUTICASONE PROPIONATE\SALMETEROL XINAFOATE
     Indication: ASTHMA
     Dosage: 2300 ?G
     Route: 055
     Dates: start: 20191120

REACTIONS (7)
  - Tachycardia [Recovered/Resolved]
  - Chest pain [Recovered/Resolved]
  - Intentional overdose [Unknown]
  - Product use issue [Unknown]
  - Hypokalaemia [Recovering/Resolving]
  - Dyspnoea [Recovered/Resolved]
  - Systolic dysfunction [Unknown]

NARRATIVE: CASE EVENT DATE: 20191120
